FAERS Safety Report 19971718 (Version 1)
Quarter: 2021Q4

REPORT INFORMATION
  Report Type: Spontaneous
  Country: IT (occurrence: IT)
  Receive Date: 20211020
  Receipt Date: 20211020
  Transmission Date: 20220303
  Serious: Yes (Other)
  Sender: FDA-Public Use
  Company Number: IT-SA-SAC20211012000581

PATIENT
  Sex: Female

DRUGS (1)
  1. AUBAGIO [Suspect]
     Active Substance: TERIFLUNOMIDE
     Indication: Multiple sclerosis
     Dosage: UNK
     Route: 048
     Dates: start: 2018

REACTIONS (5)
  - Coeliac disease [Unknown]
  - Liver function test increased [Unknown]
  - Haemoglobin decreased [Unknown]
  - Chronic gastritis [Unknown]
  - Liver disorder [Unknown]

NARRATIVE: CASE EVENT DATE: 20210801
